FAERS Safety Report 15196017 (Version 1)
Quarter: 2018Q3

REPORT INFORMATION
  Report Type: Report from Study
  Country: US (occurrence: US)
  Receive Date: 20180725
  Receipt Date: 20180725
  Transmission Date: 20181010
  Serious: No
  Sender: FDA-Public Use
  Company Number: US-ALEXION PHARMACEUTICALS INC.-A201809232

PATIENT
  Sex: Female

DRUGS (1)
  1. STRENSIQ [Suspect]
     Active Substance: ASFOTASE ALFA
     Indication: HYPOPHOSPHATASIA
     Dosage: UNK
     Route: 065

REACTIONS (7)
  - Cough [Not Recovered/Not Resolved]
  - Chills [Unknown]
  - Polyp [Recovered/Resolved]
  - Malaise [Not Recovered/Not Resolved]
  - Gastrointestinal inflammation [Unknown]
  - Blood pressure abnormal [Unknown]
  - Chest pain [Unknown]
